FAERS Safety Report 4982893-2 (Version None)
Quarter: 2006Q2

REPORT INFORMATION
  Report Type: 
  Country: None (occurrence: None)
  Receive Date: 20060420
  Receipt Date: 20060411
  Transmission Date: 20061013
  Serious: Yes (Other)
  Sender: FDA-Public Use
  Company Number: SU-2006-004831

PATIENT
  Sex: Male

DRUGS (4)
  1. WELCHOL [Suspect]
     Dosage: 3750 MG QD PO
     Route: 048
     Dates: start: 20060117
  2. ZETIA [Concomitant]
  3. LIPITOR [Concomitant]
  4. FISH OIL [Concomitant]

REACTIONS (5)
  - BLOOD CHOLESTEROL INCREASED [None]
  - BLOOD TRIGLYCERIDES INCREASED [None]
  - CONDITION AGGRAVATED [None]
  - HIGH DENSITY LIPOPROTEIN DECREASED [None]
  - PANCREATITIS [None]
